FAERS Safety Report 17138025 (Version 1)
Quarter: 2019Q4

REPORT INFORMATION
  Report Type: Spontaneous
  Country: CH (occurrence: CH)
  Receive Date: 20191211
  Receipt Date: 20191211
  Transmission Date: 20200122
  Serious: Yes (Hospitalization)
  Sender: FDA-Public Use
  Company Number: CH-ROCHE-2487487

PATIENT
  Age: 93 Year
  Sex: Male

DRUGS (6)
  1. ASPIRIN CARDIO [Suspect]
     Active Substance: ASPIRIN
     Indication: PRODUCT USED FOR UNKNOWN INDICATION
     Route: 048
     Dates: start: 2015, end: 201911
  2. PREGABALIN. [Concomitant]
     Active Substance: PREGABALIN
     Route: 048
  3. PREDNISONE. [Concomitant]
     Active Substance: PREDNISONE
     Route: 048
  4. RIVOTRIL [Suspect]
     Active Substance: CLONAZEPAM
     Indication: PRODUCT USED FOR UNKNOWN INDICATION
     Dosage: CHRONIC THERAPY; THE PATIENT TAKES 7 DROPS OF RIVOTRIL 1XDIE DAILY. ON 11.11.19 TO THE P ...
     Route: 048
     Dates: start: 20191111, end: 20191111
  5. PANTOZOL [Concomitant]
     Active Substance: PANTOPRAZOLE SODIUM
     Route: 048
  6. REMERON [Concomitant]
     Active Substance: MIRTAZAPINE
     Route: 048

REACTIONS (6)
  - Rectal haemorrhage [Recovered/Resolved]
  - Anaemia [Recovering/Resolving]
  - Prescribed overdose [Unknown]
  - Product prescribing error [Unknown]
  - Sopor [Recovering/Resolving]
  - Gastrointestinal haemorrhage [Recovering/Resolving]

NARRATIVE: CASE EVENT DATE: 20191109
